FAERS Safety Report 5060814-4 (Version None)
Quarter: 2006Q3

REPORT INFORMATION
  Report Type: 
  Country: None (occurrence: None)
  Receive Date: 20060720
  Receipt Date: 20060720
  Transmission Date: 20061208
  Serious: Yes (Life-Threatening, Hospitalization, Other)
  Sender: FDA-Public Use
  Company Number: None

PATIENT
  Age: 59 Year
  Sex: Male
  Weight: 86.1834 kg

DRUGS (1)
  1. AMBIEN [Suspect]
     Indication: INSOMNIA
     Dosage: 1 TABLET  OCCASIONALLY PO
     Route: 048
     Dates: start: 20040601, end: 20060601

REACTIONS (2)
  - ABNORMAL SLEEP-RELATED EVENT [None]
  - LIMB INJURY [None]
